FAERS Safety Report 8925417 (Version 1)
Quarter: 2012Q4

REPORT INFORMATION
  Report Type: Spontaneous
  Country: US (occurrence: None)
  Receive Date: 20121126
  Receipt Date: 20121126
  Transmission Date: 20130627
  Serious: Yes (Hospitalization)
  Sender: FDA-Public Use
  Company Number: None

PATIENT
  Sex: Female
  Weight: 47.63 kg

DRUGS (1)
  1. MIRENA IUD 5 YEAR PLAN BAYER BAYER [Suspect]
     Indication: BIRTH CONTROL
     Dates: start: 20090309, end: 20121114

REACTIONS (6)
  - Back pain [None]
  - Muscle spasms [None]
  - Pelvic inflammatory disease [None]
  - Coital bleeding [None]
  - Amenorrhoea [None]
  - Medical device complication [None]
